FAERS Safety Report 4489660-7 (Version None)
Quarter: 2004Q4

REPORT INFORMATION
  Report Type: 
  Country: None (occurrence: None)
  Receive Date: 20041027
  Receipt Date: 20040526
  Transmission Date: 20050328
  Serious: Yes (Other)
  Sender: FDA-Public Use
  Company Number: CAO04000855

PATIENT
  Age: 30 Year
  Sex: Female

DRUGS (1)
  1. PEPTO-BISMOL, (CALCIUM CARBONATE, BISMUTH SUBSALICYLATE 262 OR 525 MG) [Suspect]
     Indication: STOMACH DISCOMFORT
     Dosage: ORAL
     Route: 048
     Dates: end: 20040515

REACTIONS (8)
  - ANAPHYLACTIC SHOCK [None]
  - CONTRAINDICATION TO MEDICAL TREATMENT [None]
  - DRUG HYPERSENSITIVITY [None]
  - MEDICATION ERROR [None]
  - OROPHARYNGEAL SWELLING [None]
  - RASH [None]
  - SWOLLEN TONGUE [None]
  - URTICARIA [None]
